FAERS Safety Report 26108384 (Version 2)
Quarter: 2025Q4

REPORT INFORMATION
  Report Type: Spontaneous
  Country: US (occurrence: US)
  Receive Date: 20251201
  Receipt Date: 20251203
  Transmission Date: 20260118
  Serious: Yes (Hospitalization, Other)
  Sender: BELCHER PHARMACEUTICALS
  Company Number: US-BPI LABS, LLC-2025US004179

PATIENT

DRUGS (20)
  1. SEMAGLUTIDE [Suspect]
     Active Substance: SEMAGLUTIDE
     Indication: Product used for unknown indication
     Dosage: 5 MG/2 ML (2.5 MG/ML)
     Route: 065
  2. ATENOLOL [Concomitant]
     Active Substance: ATENOLOL
  3. HYDROCHLOROTHIAZIDE [Concomitant]
     Active Substance: HYDROCHLOROTHIAZIDE
  4. LISINOPRIL [Concomitant]
     Active Substance: LISINOPRIL
  5. ACYCLOVIR [Concomitant]
     Active Substance: ACYCLOVIR
  6. ARMOUR THYROID [Concomitant]
     Active Substance: THYROID, PORCINE
  7. B12 [Concomitant]
  8. CALTRATE WITH VITAMIN D [Concomitant]
     Active Substance: CALCIUM CARBONATE\CHOLECALCIFEROL
  9. DULOXETINE [Concomitant]
     Active Substance: DULOXETINE
  10. GABAPENTIN [Concomitant]
     Active Substance: GABAPENTIN
  11. IMODIUM [Concomitant]
     Active Substance: LOPERAMIDE HYDROCHLORIDE
  12. LEFLUNOMIDE [Concomitant]
     Active Substance: LEFLUNOMIDE
  13. LIPITOR [Concomitant]
     Active Substance: ATORVASTATIN CALCIUM
  14. LUNESTA [Concomitant]
     Active Substance: ESZOPICLONE
  15. NEXIUM [Concomitant]
     Active Substance: ESOMEPRAZOLE MAGNESIUM
  16. PRAVASTATIN [Concomitant]
     Active Substance: PRAVASTATIN
  17. PREDNISONE [Concomitant]
     Active Substance: PREDNISONE
  18. Rainbow [Concomitant]
  19. RITUXAN [Concomitant]
     Active Substance: RITUXIMAB
  20. HYDROCHLOROTHIAZIDE\TRIAMTERENE [Concomitant]
     Active Substance: HYDROCHLOROTHIAZIDE\TRIAMTERENE

REACTIONS (3)
  - Renal injury [Unknown]
  - Dehydration [Unknown]
  - Tachycardia [Unknown]

NARRATIVE: CASE EVENT DATE: 20250728
